FAERS Safety Report 26002041 (Version 2)
Quarter: 2025Q4

REPORT INFORMATION
  Report Type: Report from Study
  Country: EU (occurrence: EU)
  Receive Date: 20251105
  Receipt Date: 20251217
  Transmission Date: 20260118
  Serious: Yes (Death, Other)
  Sender: ALEXION PHARMACEUTICALS
  Company Number: EU-ASTRAZENECA-202510GLO026923FR

PATIENT
  Age: 85 Year
  Weight: 53 kg

DRUGS (5)
  1. DURVALUMAB [Suspect]
     Active Substance: DURVALUMAB
     Dosage: 1500
     Dates: start: 20250702, end: 20250702
  2. TREMELIMUMAB [Suspect]
     Active Substance: TREMELIMUMAB
     Dosage: 300
     Dates: start: 20250702, end: 20250702
  3. CARVEDILOL [Concomitant]
     Active Substance: CARVEDILOL
     Dosage: 13 MILLIGRAM, QD
     Route: 061
     Dates: start: 20250627, end: 20250826
  4. LEVOTHYROXINE [Concomitant]
     Active Substance: LEVOTHYROXINE
     Dosage: 88 GRAM, QD
     Route: 061
  5. JANUMET [Concomitant]
     Active Substance: METFORMIN HYDROCHLORIDE\SITAGLIPTIN PHOSPHATE
     Indication: Diabetes mellitus
     Dosage: 100 MILLIGRAM, QD
     Route: 061

REACTIONS (5)
  - Hepatic cytolysis [Unknown]
  - Acute respiratory distress syndrome [Fatal]
  - Atelectasis [Unknown]
  - Immune-mediated myositis [Unknown]
  - Somnolence [Unknown]

NARRATIVE: CASE EVENT DATE: 20250730
